FAERS Safety Report 10458752 (Version 1)
Quarter: 2014Q3

REPORT INFORMATION
  Report Type: Spontaneous
  Country: GB (occurrence: None)
  Receive Date: 20140915
  Receipt Date: 20140915
  Transmission Date: 20150326
  Serious: Yes (Hospitalization, Other)
  Sender: FDA-Public Use
  Company Number: 2014MP101105

PATIENT
  Age: 39 Year
  Sex: Male

DRUGS (2)
  1. ADCETRIS [Suspect]
     Active Substance: BRENTUXIMAB VEDOTIN
     Indication: HODGKIN^S DISEASE
     Route: 042
     Dates: start: 20140123, end: 20140306
  2. ALLOPURINOL. [Concomitant]
     Active Substance: ALLOPURINOL

REACTIONS (7)
  - Insomnia [None]
  - Cyanosis [None]
  - Pruritus [None]
  - Night sweats [None]
  - Dysphagia [None]
  - Pneumonitis [None]
  - Breathing-related sleep disorder [None]

NARRATIVE: CASE EVENT DATE: 20140306
